FAERS Safety Report 7820960-6 (Version None)
Quarter: 2011Q4

REPORT INFORMATION
  Report Type: 
  Country: None (occurrence: None)
  Receive Date: 20111018
  Receipt Date: 20111005
  Transmission Date: 20120403
  Serious: Yes (Hospitalization)
  Sender: FDA-Public Use
  Company Number: US-GLAXOSMITHKLINE-A0846984A

PATIENT
  Age: 40 Year
  Sex: Female

DRUGS (2)
  1. ALLI [Suspect]
     Indication: PRODUCT USED FOR UNKNOWN INDICATION
     Route: 048
     Dates: start: 20091101, end: 20091201
  2. NONE [Concomitant]

REACTIONS (21)
  - BILIRUBINURIA [None]
  - ALANINE AMINOTRANSFERASE INCREASED [None]
  - INTERNATIONAL NORMALISED RATIO INCREASED [None]
  - INFLUENZA LIKE ILLNESS [None]
  - HEPATO-LENTICULAR DEGENERATION [None]
  - BLOOD BILIRUBIN INCREASED [None]
  - LIVER TRANSPLANT [None]
  - ACUTE HEPATIC FAILURE [None]
  - ASPARTATE AMINOTRANSFERASE INCREASED [None]
  - FATIGUE [None]
  - ASTHENIA [None]
  - HEPATIC FAILURE [None]
  - CHOLESTASIS [None]
  - ABDOMINAL PAIN [None]
  - JAUNDICE [None]
  - COAGULOPATHY [None]
  - LEUKOCYTOSIS [None]
  - SCLERAL DISCOLOURATION [None]
  - LETHARGY [None]
  - HEPATIC ENCEPHALOPATHY [None]
  - DIABETES MELLITUS [None]
